FAERS Safety Report 8592997-3 (Version None)
Quarter: 2012Q3

REPORT INFORMATION
  Report Type: 
  Country: None (occurrence: None)
  Receive Date: 20120814
  Receipt Date: 20120806
  Transmission Date: 20120928
  Serious: Yes (Hospitalization, Disabling, Other)
  Sender: FDA-Public Use
  Company Number: US-009507513-1205USA04577

PATIENT

DRUGS (4)
  1. ALENDRONATE SODIUM [Suspect]
     Dosage: 70 MG, UNK
     Dates: start: 20080306, end: 20110301
  2. FOSAMAX [Suspect]
     Indication: OSTEOPOROSIS
  3. BONIVA [Suspect]
     Dosage: UNK
     Dates: start: 20070320, end: 20070401
  4. FOSAMAX [Suspect]
     Indication: OSTEOPENIA
     Dosage: 70 MG, UNK
     Route: 048
     Dates: start: 20070220, end: 20080301

REACTIONS (25)
  - FUNGAL INFECTION [None]
  - BREAST CANCER [None]
  - SPINAL OPERATION [None]
  - HYPERLIPIDAEMIA [None]
  - MUSCLE DISORDER [None]
  - MASTECTOMY [None]
  - OSTEOARTHRITIS [None]
  - COMPRESSION FRACTURE [None]
  - CLOSTRIDIUM DIFFICILE COLITIS [None]
  - DIARRHOEA [None]
  - FEMUR FRACTURE [None]
  - CALCIUM DEFICIENCY [None]
  - DEEP VEIN THROMBOSIS [None]
  - SPINAL COLUMN STENOSIS [None]
  - NEURALGIA [None]
  - RADICULOPATHY [None]
  - PSEUDOMEMBRANOUS COLITIS [None]
  - GASTROOESOPHAGEAL REFLUX DISEASE [None]
  - KNEE ARTHROPLASTY [None]
  - HYPERGLYCAEMIA [None]
  - BRONCHITIS [None]
  - OSTEOPOROSIS [None]
  - STRESS FRACTURE [None]
  - LOW TURNOVER OSTEOPATHY [None]
  - DIABETES MELLITUS [None]
